FAERS Safety Report 25046924 (Version 1)
Quarter: 2025Q1

REPORT INFORMATION
  Report Type: Spontaneous
  Country: HR (occurrence: HR)
  Receive Date: 20250306
  Receipt Date: 20250306
  Transmission Date: 20250409
  Serious: Yes (Other)
  Sender: MYLAN
  Company Number: None

PATIENT
  Age: 40 Year
  Sex: Male

DRUGS (8)
  1. LYRICA [Interacting]
     Active Substance: PREGABALIN
     Indication: Product used for unknown indication
     Dosage: 1 GRAM, QD (TOOK 700 MG IN THE MORNING, AROUND 15:00 ANOTHER 300 MG)
     Dates: start: 20250112, end: 20250112
  2. LYRICA [Interacting]
     Active Substance: PREGABALIN
     Dosage: 1 GRAM, QD (TOOK 700 MG IN THE MORNING, AROUND 15:00 ANOTHER 300 MG)
     Route: 048
     Dates: start: 20250112, end: 20250112
  3. LYRICA [Interacting]
     Active Substance: PREGABALIN
     Dosage: 1 GRAM, QD (TOOK 700 MG IN THE MORNING, AROUND 15:00 ANOTHER 300 MG)
     Route: 048
     Dates: start: 20250112, end: 20250112
  4. LYRICA [Interacting]
     Active Substance: PREGABALIN
     Dosage: 1 GRAM, QD (TOOK 700 MG IN THE MORNING, AROUND 15:00 ANOTHER 300 MG)
     Dates: start: 20250112, end: 20250112
  5. SUBUTEX [Interacting]
     Active Substance: BUPRENORPHINE HYDROCHLORIDE
     Indication: Product used for unknown indication
     Dosage: 8 MILLIGRAM, QD
     Dates: start: 20250112, end: 20250112
  6. SUBUTEX [Interacting]
     Active Substance: BUPRENORPHINE HYDROCHLORIDE
     Dosage: 8 MILLIGRAM, QD
     Route: 042
     Dates: start: 20250112, end: 20250112
  7. SUBUTEX [Interacting]
     Active Substance: BUPRENORPHINE HYDROCHLORIDE
     Dosage: 8 MILLIGRAM, QD
     Route: 042
     Dates: start: 20250112, end: 20250112
  8. SUBUTEX [Interacting]
     Active Substance: BUPRENORPHINE HYDROCHLORIDE
     Dosage: 8 MILLIGRAM, QD
     Dates: start: 20250112, end: 20250112

REACTIONS (7)
  - Pallor [Unknown]
  - Drug abuse [Unknown]
  - Withdrawal syndrome [Unknown]
  - Tremor [Unknown]
  - Incorrect route of product administration [Unknown]
  - Overdose [Unknown]
  - Drug interaction [Unknown]

NARRATIVE: CASE EVENT DATE: 20250112
